FAERS Safety Report 7385543 (Version 8)
Quarter: 2014Q1

REPORT INFORMATION
  Report Type: Spontaneous
  Country: BR (occurrence: BR)
  Receive Date: 20100512
  Receipt Date: 20140122
  Transmission Date: 20141002
  Serious: Yes (Other)
  Sender: FDA-Public Use
  Company Number: BR-PFIZER INC-2010055328

PATIENT
  Age: 44 Year
  Sex: Female
  Weight: 63 kg

DRUGS (3)
  1. DEPO-PROVERA [Suspect]
     Indication: CONTRACEPTION
     Dosage: 150 MG, EVERY 3 MONTHS
     Route: 030
     Dates: start: 20100405
  2. DEPO-PROVERA [Suspect]
     Indication: MENSTRUAL DISCOMFORT
  3. DEPO-PROVERA [Suspect]
     Indication: DYSMENORRHOEA

REACTIONS (7)
  - Inappropriate schedule of drug administration [Unknown]
  - Renal colic [Unknown]
  - Amenorrhoea [Not Recovered/Not Resolved]
  - Hypertension [Unknown]
  - Nausea [Unknown]
  - Metrorrhagia [Recovered/Resolved]
  - Weight decreased [Recovered/Resolved]
